FAERS Safety Report 14273996 (Version 1)
Quarter: 2017Q4

REPORT INFORMATION
  Report Type: Spontaneous
  Country: FR (occurrence: FR)
  Receive Date: 20171211
  Receipt Date: 20171211
  Transmission Date: 20180321
  Serious: Yes (Death)
  Sender: FDA-Public Use
  Company Number: FR-OTSUKA-KJ20051664

PATIENT
  Age: 50 Year
  Sex: Female
  Weight: 52 kg

DRUGS (4)
  1. ABILIFY [Suspect]
     Active Substance: ARIPIPRAZOLE
     Indication: SCHIZOPHRENIA
     Dosage: 25 MG, UNK
     Route: 048
     Dates: start: 20050628, end: 20050710
  2. LOXAPAC [Concomitant]
     Active Substance: LOXAPINE SUCCINATE
     Indication: AGITATION
     Dosage: 500 MG, UNK
     Route: 065
     Dates: start: 20050707, end: 20050710
  3. LAROXYL [Concomitant]
     Active Substance: AMITRIPTYLINE HYDROCHLORIDE
     Indication: AGITATION
     Dosage: 150 MG, UNK
     Route: 065
     Dates: start: 20050707, end: 20050710
  4. LOXAPAC [Concomitant]
     Active Substance: LOXAPINE SUCCINATE
     Indication: PATIENT ISOLATION

REACTIONS (1)
  - Sepsis [Fatal]

NARRATIVE: CASE EVENT DATE: 20050709
